FAERS Safety Report 5748889-8 (Version None)
Quarter: 2008Q2

REPORT INFORMATION
  Report Type: 
  Country: None (occurrence: None)
  Receive Date: 20080522
  Receipt Date: 20080507
  Transmission Date: 20081010
  Serious: Yes (Hospitalization)
  Sender: FDA-Public Use
  Company Number: B0520649A

PATIENT
  Sex: Female

DRUGS (2)
  1. AMOXICILLIN TRIHYDRATE [Suspect]
     Dosage: TRANSPLACENTARY
     Route: 064
  2. MORNIFLUMATE (FORMULATION UNKNOWN) (MORNIFLUMATE) [Suspect]

REACTIONS (11)
  - APGAR SCORE LOW [None]
  - BLOOD PH INCREASED [None]
  - CARDIOMEGALY [None]
  - HYPOTENSION [None]
  - MATERNAL DRUGS AFFECTING FOETUS [None]
  - NEONATAL HYPOXIA [None]
  - NEONATAL RESPIRATORY DISTRESS SYNDROME [None]
  - PERSISTENT FOETAL CIRCULATION [None]
  - RESPIRATORY DISTRESS [None]
  - SMALL FOR DATES BABY [None]
  - TRICUSPID VALVE INCOMPETENCE [None]
